FAERS Safety Report 5250768-X (Version None)
Quarter: 2007Q1

REPORT INFORMATION
  Report Type: 
  Country: None (occurrence: None)
  Receive Date: 20070228
  Receipt Date: 20070215
  Transmission Date: 20070707
  Serious: Yes (Other)
  Sender: FDA-Public Use
  Company Number: HU-ELI_LILLY_AND_COMPANY-HU200702002998

PATIENT
  Age: 63 Year
  Sex: Female

DRUGS (1)
  1. RALOXIFENE HCL [Suspect]
     Indication: OSTEOPOROSIS POSTMENOPAUSAL
     Dosage: 60 MG, DAILY (1/D)
     Route: 048
     Dates: start: 20061201, end: 20070201

REACTIONS (4)
  - BLOOD PRESSURE FLUCTUATION [None]
  - HOT FLUSH [None]
  - NIGHT SWEATS [None]
  - OEDEMA PERIPHERAL [None]
